FAERS Safety Report 21785863 (Version 4)
Quarter: 2023Q2

REPORT INFORMATION
  Report Type: Spontaneous
  Country: US (occurrence: US)
  Receive Date: 20221227
  Receipt Date: 20230421
  Transmission Date: 20230722
  Serious: Yes (Other)
  Sender: FDA-Public Use
  Company Number: US-SA-SAC20221227000212

PATIENT
  Age: 30 Year
  Sex: Male

DRUGS (4)
  1. ELOCTATE [Suspect]
     Active Substance: EFMOROCTOCOG ALFA
     Indication: Factor VIII deficiency
     Dosage: 5600 UNITS (5040-6160) SLOW IV EVERY 4 DAYS
     Route: 042
     Dates: start: 201903
  2. ELOCTATE [Suspect]
     Active Substance: EFMOROCTOCOG ALFA
     Indication: Factor VIII deficiency
     Dosage: 5600 UNITS (5040-6160) SLOW IV EVERY 4 DAYS
     Route: 042
     Dates: start: 201903
  3. ELOCTATE [Suspect]
     Active Substance: EFMOROCTOCOG ALFA
     Dosage: 2800 UNITS (2520-3080) SLOW IV EVERY 1 TO 2 DAYS AS NEEDED IF EXPERIENCING ACUTE JOINT BLEED
     Route: 042
     Dates: start: 201903
  4. ELOCTATE [Suspect]
     Active Substance: EFMOROCTOCOG ALFA
     Dosage: 2800 UNITS (2520-3080) SLOW IV EVERY 1 TO 2 DAYS AS NEEDED IF EXPERIENCING ACUTE JOINT BLEED
     Route: 042
     Dates: start: 201903

REACTIONS (4)
  - Spontaneous haemorrhage [Unknown]
  - Haemorrhage [Recovered/Resolved]
  - Haemorrhage [Recovered/Resolved]
  - Haemorrhage [Recovered/Resolved]

NARRATIVE: CASE EVENT DATE: 20230202
